FAERS Safety Report 8167096-5 (Version None)
Quarter: 2012Q1

REPORT INFORMATION
  Report Type: 
  Country: None (occurrence: None)
  Receive Date: 20120227
  Receipt Date: 20120215
  Transmission Date: 20120608
  Serious: No
  Sender: FDA-Public Use
  Company Number: US-B.I. PHARMACEUTICALS,INC./RIDGEFIELD-2012-BP-02931BP

PATIENT
  Sex: Male

DRUGS (3)
  1. NIASPAN [Concomitant]
     Indication: BLOOD CHOLESTEROL
     Dosage: 2000 MG
     Route: 048
  2. PRADAXA [Suspect]
     Indication: ATRIAL SEPTAL DEFECT
     Dosage: 300 MG
     Route: 048
     Dates: start: 20120125
  3. PRILOSEC [Concomitant]
     Indication: PROPHYLAXIS
     Dosage: 40 MG
     Route: 048
     Dates: start: 20120125

REACTIONS (2)
  - RASH PRURITIC [None]
  - FLUSHING [None]
